FAERS Safety Report 9869516 (Version 6)
Quarter: 2014Q4

REPORT INFORMATION
  Report Type: Spontaneous
  Country: US (occurrence: US)
  Receive Date: 20140205
  Receipt Date: 20141216
  Transmission Date: 20150529
  Serious: Yes (Hospitalization, Disabling, Other)
  Sender: FDA-Public Use
  Company Number: US-009507513-1401USA014301

PATIENT
  Sex: Female
  Weight: 61.68 kg

DRUGS (4)
  1. FOSAMAX [Suspect]
     Active Substance: ALENDRONATE SODIUM
     Indication: OSTEOPOROSIS
  2. ALENDRONATE SODIUM. [Suspect]
     Active Substance: ALENDRONATE SODIUM
     Indication: OSTEOPENIA
     Dosage: 70 MG, QW
     Route: 048
     Dates: start: 20080215, end: 20111107
  3. FOSAMAX [Suspect]
     Active Substance: ALENDRONATE SODIUM
     Indication: OSTEOPENIA
     Dosage: 70 MG, QW
     Route: 048
     Dates: start: 20030924
  4. ALENDRONATE SODIUM. [Suspect]
     Active Substance: ALENDRONATE SODIUM
     Indication: OSTEOPOROSIS

REACTIONS (55)
  - Intervertebral disc degeneration [Unknown]
  - Radiculitis [Unknown]
  - Restless legs syndrome [Recovering/Resolving]
  - Nasopharyngitis [Unknown]
  - Rash [Recovered/Resolved]
  - Irritable bowel syndrome [Unknown]
  - Peripheral swelling [Recovered/Resolved]
  - Depression [Recovering/Resolving]
  - Hyperlipidaemia [Unknown]
  - Osteoarthritis [Unknown]
  - Contusion [Unknown]
  - Anaemia [Unknown]
  - Dizziness [Unknown]
  - Muscle spasms [Unknown]
  - Intramedullary rod insertion [Unknown]
  - Somnolence [Recovering/Resolving]
  - Breath sounds abnormal [Recovered/Resolved]
  - Sleep apnoea syndrome [Unknown]
  - Periodic limb movement disorder [Unknown]
  - Acute sinusitis [Unknown]
  - Back pain [Recovering/Resolving]
  - Lung infiltration [Unknown]
  - Arthralgia [Unknown]
  - Spinal osteoarthritis [Unknown]
  - Large intestine benign neoplasm [Unknown]
  - Inflammatory bowel disease [Unknown]
  - Vitamin B12 deficiency [Unknown]
  - Insomnia [Unknown]
  - Hypertension [Recovered/Resolved]
  - Tinnitus [Unknown]
  - Laceration [Unknown]
  - Calcium deficiency [Unknown]
  - Cough [Not Recovered/Not Resolved]
  - Adverse event [Unknown]
  - Pain in extremity [Unknown]
  - Femur fracture [Recovered/Resolved]
  - Fracture nonunion [Recovered/Resolved]
  - Medical device removal [Unknown]
  - Hepatic cyst [Unknown]
  - Deafness [Unknown]
  - Low turnover osteopathy [Unknown]
  - Epicondylitis [Unknown]
  - Impetigo [Unknown]
  - Upper respiratory tract infection [Unknown]
  - Atelectasis [Unknown]
  - Asthenia [Recovering/Resolving]
  - Pruritus [Unknown]
  - Gastrooesophageal reflux disease [Unknown]
  - Haemorrhagic anaemia [Unknown]
  - Hypertension [Unknown]
  - Anxiety [Recovering/Resolving]
  - Vitamin D deficiency [Unknown]
  - Fall [Unknown]
  - Pollakiuria [Recovered/Resolved]
  - Fatigue [Recovered/Resolved]

NARRATIVE: CASE EVENT DATE: 2003
